FAERS Safety Report 18091174 (Version 1)
Quarter: 2020Q3

REPORT INFORMATION
  Report Type: Spontaneous
  Country: US (occurrence: US)
  Receive Date: 20200729
  Receipt Date: 20200729
  Transmission Date: 20201103
  Serious: Yes (Other)
  Sender: FDA-Public Use
  Company Number: None

PATIENT
  Age: 42 Year
  Sex: Male
  Weight: 94.95 kg

DRUGS (1)
  1. BUPRENORPHINE/NALOXONE FILM [Suspect]
     Active Substance: BUPRENORPHINE\NALOXONE
     Indication: DRUG DEPENDENCE

REACTIONS (1)
  - Blister [None]

NARRATIVE: CASE EVENT DATE: 20200728
